FAERS Safety Report 4715980-4 (Version None)
Quarter: 2005Q3

REPORT INFORMATION
  Report Type: 
  Country: None (occurrence: None)
  Receive Date: 20050718
  Receipt Date: 20050601
  Transmission Date: 20060218
  Serious: Yes (Hospitalization, Other)
  Sender: FDA-Public Use
  Company Number: US-MERCK-0506USA00566

PATIENT
  Age: 47 Year
  Sex: Female
  Weight: 82 kg

DRUGS (16)
  1. VIOXX [Suspect]
     Indication: PAIN
     Route: 048
     Dates: start: 20001101, end: 20041101
  2. VIOXX [Suspect]
     Route: 048
     Dates: start: 20001226
  3. SEREVENT [Concomitant]
     Route: 055
  4. NAPROXEN [Concomitant]
     Route: 065
  5. ULTRACET [Concomitant]
     Route: 065
  6. NORVASC [Concomitant]
     Indication: CARDIAC DISORDER
     Route: 065
     Dates: start: 19990101, end: 20040101
  7. CLONAZEPAM [Concomitant]
     Indication: ANXIETY
     Route: 065
     Dates: start: 20020101
  8. AMITRIPTYLINE HYDROCHLORIDE [Concomitant]
     Indication: ANTIDEPRESSANT THERAPY
     Route: 065
     Dates: start: 20020101
  9. LISINOPRIL [Concomitant]
     Route: 065
     Dates: start: 20020101, end: 20040101
  10. ELAVIL [Concomitant]
     Indication: DEPRESSION
     Route: 065
     Dates: start: 20020703, end: 20030101
  11. COZAAR [Concomitant]
     Indication: HYPERTENSION
     Route: 065
     Dates: start: 20030101, end: 20050103
  12. CARDIZEM [Concomitant]
     Indication: CARDIAC DISORDER
     Route: 065
  13. BUMETANIDE [Concomitant]
     Indication: HYPERTENSION
     Route: 065
     Dates: start: 20030101
  14. ULTRAM [Concomitant]
     Route: 065
     Dates: start: 19990101
  15. NEURONTIN [Concomitant]
     Indication: PAIN
     Route: 065
     Dates: start: 20000101, end: 20010101
  16. VICODIN [Concomitant]
     Route: 065

REACTIONS (70)
  - ABDOMINAL PAIN [None]
  - AMNESIA [None]
  - ANAEMIA [None]
  - ANGINA UNSTABLE [None]
  - ANXIETY [None]
  - ARTHRITIS [None]
  - ASTHMA [None]
  - ATHEROSCLEROSIS [None]
  - BLOOD PRESSURE INCREASED [None]
  - BUNDLE BRANCH BLOCK [None]
  - BUNDLE BRANCH BLOCK RIGHT [None]
  - CARDIAC FAILURE CONGESTIVE [None]
  - CARDIAC VALVE DISEASE [None]
  - CARDIOMEGALY [None]
  - CAROTID ARTERY DISEASE [None]
  - CEREBROVASCULAR ACCIDENT [None]
  - CHEST PAIN [None]
  - CHRONIC OBSTRUCTIVE PULMONARY DISEASE [None]
  - CONDITION AGGRAVATED [None]
  - CONSTIPATION [None]
  - CORONARY ARTERY DISEASE [None]
  - DEEP VEIN THROMBOSIS [None]
  - DEPRESSION [None]
  - DERMATITIS [None]
  - DIZZINESS [None]
  - DRUG DEPENDENCE [None]
  - FALL [None]
  - FIBROMYALGIA [None]
  - GASTROINTESTINAL HAEMORRHAGE [None]
  - HAEMATOCHEZIA [None]
  - HAEMOPTYSIS [None]
  - HAEMORRHOIDS [None]
  - HEART RATE INCREASED [None]
  - HEMIPARESIS [None]
  - HERPES SIMPLEX [None]
  - HYPERGLYCAEMIA [None]
  - HYPERTENSION [None]
  - HYPOAESTHESIA [None]
  - INFLAMMATION [None]
  - IRON DEFICIENCY ANAEMIA [None]
  - LIVER DISORDER [None]
  - LOBAR PNEUMONIA [None]
  - LOSS OF CONSCIOUSNESS [None]
  - MICROCYTIC ANAEMIA [None]
  - MUSCULOSKELETAL PAIN [None]
  - MYOCARDIAL INFARCTION [None]
  - MYOCARDIAL ISCHAEMIA [None]
  - NAUSEA [None]
  - OEDEMA PERIPHERAL [None]
  - PAIN [None]
  - PANIC ATTACK [None]
  - PHARYNGOLARYNGEAL PAIN [None]
  - PNEUMONIA [None]
  - POST-TRAUMATIC STRESS DISORDER [None]
  - REFRACTORY ANAEMIA [None]
  - RENAL FAILURE [None]
  - RENAL FAILURE ACUTE [None]
  - RESPIRATORY ACIDOSIS [None]
  - RHEUMATOID ARTHRITIS [None]
  - ROAD TRAFFIC ACCIDENT [None]
  - SCIATICA [None]
  - SINUSITIS [None]
  - STAPHYLOCOCCAL INFECTION [None]
  - STATUS ASTHMATICUS [None]
  - STRESS INCONTINENCE [None]
  - SUICIDE ATTEMPT [None]
  - ULCER [None]
  - VENTRICULAR EXTRASYSTOLES [None]
  - VISION BLURRED [None]
  - WEIGHT INCREASED [None]
